FAERS Safety Report 4841468-6 (Version None)
Quarter: 2005Q4

REPORT INFORMATION
  Report Type: 
  Country: None (occurrence: None)
  Receive Date: 20051130
  Receipt Date: 20050802
  Transmission Date: 20060501
  Serious: No
  Sender: FDA-Public Use
  Company Number: US-GLAXOSMITHKLINE-A0568613A

PATIENT
  Age: 47 Year
  Sex: Female

DRUGS (4)
  1. WELLBUTRIN XL [Suspect]
     Indication: DEPRESSION
     Dosage: 150MG PER DAY
     Route: 048
     Dates: start: 20050215
  2. AMANTADINE HCL [Concomitant]
  3. COPAXONE [Concomitant]
  4. LAMICTAL [Concomitant]

REACTIONS (2)
  - ANXIETY [None]
  - INSOMNIA [None]
